FAERS Safety Report 7725792-5 (Version None)
Quarter: 2011Q3

REPORT INFORMATION
  Report Type: 
  Country: None (occurrence: None)
  Receive Date: 20110902
  Receipt Date: 20110822
  Transmission Date: 20111222
  Serious: Yes (Hospitalization)
  Sender: FDA-Public Use
  Company Number: FR-NOVOPROD-332609

PATIENT

DRUGS (13)
  1. ASPIRIN [Concomitant]
     Dosage: 160 MG, QD
  2. IRBESARTAN AND HYDROCHLOROTHIAZIDE [Concomitant]
     Dosage: UNK
     Dates: start: 20081020, end: 20110601
  3. REPAGLINIDE [Suspect]
     Indication: TYPE 2 DIABETES MELLITUS
     Dosage: 2 PER DAY
     Route: 065
     Dates: start: 20100201, end: 20110601
  4. AMOXICILLIN [Suspect]
     Indication: DYSPNOEA
  5. LANTUS [Concomitant]
     Dosage: 24 IU, QD
     Dates: end: 20110601
  6. LERCANIDIPINE [Concomitant]
     Dosage: 20 MG, QD
     Dates: start: 20051020, end: 20110601
  7. LASIX [Concomitant]
     Dosage: 20 MG, QD
     Dates: start: 20101101, end: 20110614
  8. BISOPROLOL FUMARATE [Concomitant]
     Dosage: 2.5 MG, QD
     Dates: start: 20100201
  9. METFORMIN HCL [Concomitant]
     Dosage: UNK
     Dates: start: 20100501, end: 20110601
  10. BISOPROLOL FUMARATE [Concomitant]
     Dosage: 5 MG, BID
     Dates: start: 20110624
  11. AMOXICILLIN [Suspect]
     Indication: PYREXIA
     Dosage: 3 G, QD
     Route: 065
     Dates: start: 20110525, end: 20110531
  12. AMOXICILLIN [Suspect]
     Indication: RHINITIS
  13. ASPIRIN [Concomitant]
     Dosage: 75 MG, UNK
     Dates: start: 20110624

REACTIONS (3)
  - EOSINOPHILIA [None]
  - CONDITION AGGRAVATED [None]
  - RENAL FAILURE ACUTE [None]
